FAERS Safety Report 11358961 (Version 1)
Quarter: 2015Q3

REPORT INFORMATION
  Report Type: Spontaneous
  Country: US (occurrence: None)
  Receive Date: 20150807
  Receipt Date: 20150807
  Transmission Date: 20151125
  Serious: Yes (Disabling, Other)
  Sender: FDA-Public Use
  Company Number: None

PATIENT
  Age: 50 Year
  Sex: Male
  Weight: 92.99 kg

DRUGS (10)
  1. GEMFIBROZIL. [Concomitant]
     Active Substance: GEMFIBROZIL
  2. CLARITIN [Concomitant]
     Active Substance: LORATADINE
  3. STELARA [Suspect]
     Active Substance: USTEKINUMAB
     Indication: PSORIASIS
     Dosage: GIVEN INTO/UNDER THE SKIN;
     Dates: start: 20150508, end: 20150806
  4. MICARDIS W/HCTZ [Concomitant]
  5. PROSTATE HEALTH VITAMIN [Concomitant]
  6. JANUMET [Concomitant]
     Active Substance: METFORMIN HYDROCHLORIDE\SITAGLIPTIN PHOSPHATE
  7. BABY ASA [Concomitant]
     Active Substance: ASPIRIN
  8. STELARA [Concomitant]
     Active Substance: USTEKINUMAB
  9. VITAMIN D [Concomitant]
     Active Substance: CHOLECALCIFEROL
  10. MULTIVITAMIN [Concomitant]
     Active Substance: VITAMINS

REACTIONS (9)
  - Hordeolum [None]
  - Fatigue [None]
  - Myalgia [None]
  - Decreased appetite [None]
  - Dermal cyst [None]
  - Arthralgia [None]
  - Glomerular filtration rate decreased [None]
  - Eyelid oedema [None]
  - Nausea [None]

NARRATIVE: CASE EVENT DATE: 20150508
